FAERS Safety Report 4755098-8 (Version None)
Quarter: 2005Q3

REPORT INFORMATION
  Report Type: 
  Country: None (occurrence: None)
  Receive Date: 20050829
  Receipt Date: 20050808
  Transmission Date: 20060218
  Serious: Yes (Disabling)
  Sender: FDA-Public Use
  Company Number: PHBS2005IN11503

PATIENT
  Age: 23 Year
  Sex: Female

DRUGS (2)
  1. OKACIN [Concomitant]
     Indication: ULCERATIVE KERATITIS
  2. GENTEAL (NVO) [Suspect]
     Dosage: 2 DROPS, 6QD

REACTIONS (3)
  - ABNORMAL SENSATION IN EYE [None]
  - EYE PAIN [None]
  - LACRIMATION INCREASED [None]
